FAERS Safety Report 8980374 (Version 2)
Quarter: 2013Q1

REPORT INFORMATION
  Report Type: Spontaneous
  Country: CA (occurrence: CA)
  Receive Date: 20121221
  Receipt Date: 20130218
  Transmission Date: 20140127
  Serious: Yes (Hospitalization, Other)
  Sender: FDA-Public Use
  Company Number: PHHY2012CA118019

PATIENT
  Age: 71 None
  Sex: Male

DRUGS (4)
  1. TASIGNA [Suspect]
     Indication: CHRONIC MYELOID LEUKAEMIA
     Dosage: 200 MG, BID
     Route: 048
     Dates: start: 200905
  2. PLAVIX [Concomitant]
  3. LOVASTATIN [Concomitant]
  4. AMLODIPINE [Concomitant]

REACTIONS (4)
  - Cerebrovascular accident [Recovered/Resolved]
  - Blood pressure increased [Recovered/Resolved]
  - Peripheral arterial occlusive disease [Unknown]
  - Gait disturbance [Recovered/Resolved]
